FAERS Safety Report 7298206-X (Version None)
Quarter: 2011Q1

REPORT INFORMATION
  Report Type: 
  Country: None (occurrence: None)
  Receive Date: 20110128
  Receipt Date: 20110111
  Transmission Date: 20110831
  Serious: Yes (Other)
  Sender: FDA-Public Use
  Company Number: 2011PROUSA00171

PATIENT
  Age: 79 Year
  Sex: Male

DRUGS (3)
  1. PROVENGE [Suspect]
     Indication: PROSTATE CANCER METASTATIC
     Dosage: 250 ML, SINGLE, INTRAVENOUS
     Route: 042
     Dates: start: 20101206, end: 20101206
  2. PROVENGE [Suspect]
     Indication: PROSTATE CANCER METASTATIC
     Dosage: 250 ML, SINGLE, INTRAVENOUS
     Route: 042
     Dates: start: 20101220, end: 20101220
  3. PROVENGE [Suspect]

REACTIONS (12)
  - NEOPLASM MALIGNANT [None]
  - TONGUE ULCERATION [None]
  - METASTASES TO MENINGES [None]
  - DRUG DOSE OMISSION [None]
  - CEREBRAL HYPOPERFUSION [None]
  - STEAL SYNDROME [None]
  - VERTEBRAL ARTERY STENOSIS [None]
  - ASPARTATE AMINOTRANSFERASE INCREASED [None]
  - HAEMOGLOBIN DECREASED [None]
  - PROSTATE CANCER [None]
  - INTRACRANIAL ANEURYSM [None]
  - WHITE BLOOD CELL COUNT DECREASED [None]
